FAERS Safety Report 4933311-1 (Version None)
Quarter: 2006Q1

REPORT INFORMATION
  Report Type: 
  Country: None (occurrence: None)
  Receive Date: 20060106
  Receipt Date: 20051005
  Transmission Date: 20060701
  Serious: No
  Sender: FDA-Public Use
  Company Number: 200511227BWH

PATIENT
  Age: 56 Year
  Sex: Male

DRUGS (8)
  1. LEVITRA [Suspect]
     Indication: ERECTILE DYSFUNCTION
     Dosage: 10 MG, PRN, ORAL
     Route: 048
  2. REMERON [Concomitant]
  3. MULTIVITAMIN [Concomitant]
  4. CALICUM [Concomitant]
  5. PENTASA [Concomitant]
  6. ENTOCORT [Concomitant]
  7. PREDNISONE [Concomitant]
  8. ACTONEL [Concomitant]

REACTIONS (4)
  - ABDOMINAL PAIN [None]
  - CROHN'S DISEASE [None]
  - FREQUENT BOWEL MOVEMENTS [None]
  - PROCTALGIA [None]
